FAERS Safety Report 20821655 (Version 2)
Quarter: 2022Q4

REPORT INFORMATION
  Report Type: Spontaneous
  Country: US (occurrence: US)
  Receive Date: 20220512
  Receipt Date: 20221209
  Transmission Date: 20230113
  Serious: No
  Sender: FDA-Public Use
  Company Number: US-PFIZER INC-202200390658

PATIENT
  Age: 45 Year
  Sex: Female

DRUGS (1)
  1. XELJANZ [Suspect]
     Active Substance: TOFACITINIB CITRATE
     Indication: Rheumatoid arthritis
     Dosage: 5 MG, 2X/DAY
     Route: 048
     Dates: start: 202201, end: 2022

REACTIONS (2)
  - Therapeutic response unexpected [Unknown]
  - Eczema [Recovering/Resolving]

NARRATIVE: CASE EVENT DATE: 20220101
